FAERS Safety Report 5057546-5 (Version None)
Quarter: 2006Q3

REPORT INFORMATION
  Report Type: 
  Country: None (occurrence: None)
  Receive Date: 20060721
  Receipt Date: 20051114
  Transmission Date: 20061208
  Serious: No
  Sender: FDA-Public Use
  Company Number: US-GLAXOSMITHKLINE-A0582143A

PATIENT
  Age: 75 Year
  Sex: Female

DRUGS (8)
  1. AVANDIA [Suspect]
     Dosage: 8MG PER DAY
     Route: 048
  2. METFORMIN [Concomitant]
  3. GLIPIZIDE [Concomitant]
  4. TEMAZEPAM [Concomitant]
  5. IMODIUM [Concomitant]
  6. MULTI-VITAMIN [Concomitant]
  7. FOLIC ACID [Concomitant]
  8. VITAMIN B COMPLEX CAP [Concomitant]

REACTIONS (1)
  - MYALGIA [None]
